FAERS Safety Report 9319634 (Version 5)
Quarter: 2015Q3

REPORT INFORMATION
  Report Type: Spontaneous
  Country: US (occurrence: US)
  Receive Date: 20130530
  Receipt Date: 20150707
  Transmission Date: 20151125
  Serious: Yes (Other)
  Sender: FDA-Public Use
  Company Number: US-GLAXOSMITHKLINE-A1016723A

PATIENT
  Age: 50 Year
  Sex: Female

DRUGS (8)
  1. FLOLAN [Suspect]
     Active Substance: EPOPROSTENOL SODIUM
     Dosage: UNK
     Dates: start: 19970926
  2. COUMADIN [Concomitant]
     Active Substance: WARFARIN SODIUM
  3. FLOLAN [Suspect]
     Active Substance: EPOPROSTENOL SODIUM
     Dosage: 63 NG/KG/MIN, CO
     Dates: start: 19990430
  4. FLOLAN [Suspect]
     Active Substance: EPOPROSTENOL SODIUM
     Indication: PULMONARY ARTERIAL HYPERTENSION
     Dosage: 74NG/KG/MINUTES CONTINUOUSLYUPDATED DOSING ON 08 MAY 2014:DOSE: 68 NG/KG/MIN, CONC: 90,000 NG/M[...]
     Route: 042
     Dates: start: 19970926
  5. FLOLAN [Suspect]
     Active Substance: EPOPROSTENOL SODIUM
     Dosage: UNK
     Dates: start: 19970926
  6. FLOLAN [Suspect]
     Active Substance: EPOPROSTENOL SODIUM
     Dosage: 56 NG/KG/MIN, CO
  7. FLOLAN [Suspect]
     Active Substance: EPOPROSTENOL SODIUM
     Dosage: 54 NG/KG/MIN, CO
  8. FLOLAN [Suspect]
     Active Substance: EPOPROSTENOL SODIUM
     Dosage: UNK
     Dates: start: 19970926

REACTIONS (11)
  - Tinnitus [Unknown]
  - Infusion site erythema [Recovered/Resolved]
  - Skin ulcer [Unknown]
  - Influenza [Unknown]
  - Malaise [Unknown]
  - Swelling [Unknown]
  - Erythema [Unknown]
  - Headache [Unknown]
  - Infected skin ulcer [Unknown]
  - Infusion site swelling [Recovered/Resolved]
  - Impaired healing [Recovering/Resolving]

NARRATIVE: CASE EVENT DATE: 201303
